FAERS Safety Report 6144945-3 (Version None)
Quarter: 2009Q2

REPORT INFORMATION
  Report Type: 
  Country: None (occurrence: None)
  Receive Date: 20090406
  Receipt Date: 20090403
  Transmission Date: 20091009
  Serious: Yes (Life-Threatening, Hospitalization, Other)
  Sender: FDA-Public Use
  Company Number: DE-B.I. PHARMACEUTICALS,INC./RIDGEFIELD-2009-DE-01726DE

PATIENT
  Sex: Male

DRUGS (2)
  1. AGGRENOX [Suspect]
     Dosage: 25ANZ
     Route: 048
  2. TREVILOR [Suspect]
     Route: 048

REACTIONS (8)
  - CONSTIPATION [None]
  - DISORIENTATION [None]
  - DRUG ABUSE [None]
  - HYPOTENSION [None]
  - LOSS OF CONSCIOUSNESS [None]
  - OVERDOSE [None]
  - PNEUMONIA ASPIRATION [None]
  - SUICIDE ATTEMPT [None]
